FAERS Safety Report 5708280-7 (Version None)
Quarter: 2008Q2

REPORT INFORMATION
  Report Type: 
  Country: None (occurrence: None)
  Receive Date: 20080417
  Receipt Date: 20080409
  Transmission Date: 20081010
  Serious: Yes (Other)
  Sender: FDA-Public Use
  Company Number: JP-MERCK-0804USA01655

PATIENT
  Age: 86 Year
  Sex: Male
  Weight: 54 kg

DRUGS (4)
  1. HYZAAR [Suspect]
     Indication: HYPERTENSION
     Route: 048
     Dates: start: 20080308, end: 20080324
  2. SERMION [Concomitant]
     Indication: CEREBRAL INFARCTION
     Route: 048
     Dates: start: 20070714
  3. PERDIPINE [Concomitant]
     Indication: HYPERTENSION
     Route: 048
     Dates: start: 20070714
  4. MEXITIL [Concomitant]
     Indication: VENTRICULAR EXTRASYSTOLES
     Route: 048
     Dates: start: 20070714

REACTIONS (1)
  - EYE SWELLING [None]
